FAERS Safety Report 7469889-6 (Version None)
Quarter: 2011Q2

REPORT INFORMATION
  Report Type: 
  Country: None (occurrence: None)
  Receive Date: 20110510
  Receipt Date: 20110427
  Transmission Date: 20111010
  Serious: Yes (Hospitalization, Other)
  Sender: FDA-Public Use
  Company Number: US-BAYER-201028071NA

PATIENT
  Age: 31 Year
  Sex: Female
  Weight: 69.841 kg

DRUGS (3)
  1. YAZ [Suspect]
     Dosage: 1 TAB/DAY
     Route: 048
     Dates: start: 20050101, end: 20070101
  2. IUD NOS [Concomitant]
     Dosage: UNK
     Dates: start: 20020801
  3. YASMIN [Suspect]
     Dosage: 1 TAB/DAY
     Route: 048
     Dates: start: 20050101, end: 20070101

REACTIONS (9)
  - NAUSEA [None]
  - VOMITING [None]
  - CHOLECYSTITIS [None]
  - SMALL INTESTINAL OBSTRUCTION [None]
  - HYPERTENSION [None]
  - CHOLECYSTITIS CHRONIC [None]
  - ABDOMINAL PAIN UPPER [None]
  - ABDOMINAL ADHESIONS [None]
  - CHOLELITHIASIS [None]
